FAERS Safety Report 9185900 (Version 1)
Quarter: 2013Q1

REPORT INFORMATION
  Report Type: Spontaneous
  Country: US (occurrence: None)
  Receive Date: 20130321
  Receipt Date: 20130321
  Transmission Date: 20140127
  Serious: Yes (Other)
  Sender: FDA-Public Use
  Company Number: 1640024

PATIENT
  Sex: 0

DRUGS (8)
  1. DOBUTAMINE HYDROCHLORIDE [Suspect]
     Indication: PRODUCT USED FOR UNKNOWN INDICATION
     Route: 041
  2. DOPAMINE HYDROCHLORIDE [Suspect]
     Indication: PRODUCT USED FOR UNKNOWN INDICATION
  3. HEPARIN SODIUM [Suspect]
     Indication: PRODUCT USED FOR UNKNOWN INDICATION
  4. MILRINONE [Suspect]
     Indication: PRODUCT USED FOR UNKNOWN INDICATION
  5. METOLAZONE [Suspect]
     Indication: PRODUCT USED FOR UNKNOWN INDICATION
  6. BUMETANIDE [Suspect]
     Indication: PRODUCT USED FOR UNKNOWN INDICATION
  7. SPIRONOLACTONE [Suspect]
     Indication: PRODUCT USED FOR UNKNOWN INDICATION
  8. LEVOFLOXACIN [Suspect]
     Indication: PRODUCT USED FOR UNKNOWN INDICATION

REACTIONS (1)
  - Allergic myocarditis [None]
